FAERS Safety Report 14067978 (Version 1)
Quarter: 2017Q4

REPORT INFORMATION
  Report Type: Spontaneous
  Country: US (occurrence: US)
  Receive Date: 20171009
  Receipt Date: 20171009
  Transmission Date: 20180321
  Serious: Yes (Disabling)
  Sender: FDA-Public Use
  Company Number: None

PATIENT
  Age: 35 Year
  Sex: Female
  Weight: 69.75 kg

DRUGS (2)
  1. PRENATAL VITAMINS [Concomitant]
     Active Substance: VITAMINS
  2. DICLOFENAC [Suspect]
     Active Substance: DICLOFENAC
     Indication: CARPAL TUNNEL SYNDROME
     Dosage: ?          QUANTITY:1 TABLET(S);?
     Route: 048
     Dates: start: 20170918, end: 20171008

REACTIONS (4)
  - Paraesthesia [None]
  - Condition aggravated [None]
  - Micturition disorder [None]
  - Hypoaesthesia [None]

NARRATIVE: CASE EVENT DATE: 20171008
